FAERS Safety Report 4376234-1 (Version None)
Quarter: 2004Q2

REPORT INFORMATION
  Report Type: 
  Country: None (occurrence: None)
  Receive Date: 20040608
  Receipt Date: 20030327
  Transmission Date: 20050107
  Serious: Yes (Other)
  Sender: FDA-Public Use
  Company Number: 200311022BCC

PATIENT
  Age: 38 Year
  Sex: Male
  Weight: 113.3993 kg

DRUGS (2)
  1. ALEVE [Suspect]
     Indication: PAIN
     Dosage: 440-600 MG, QD, ORAL
     Route: 048
     Dates: start: 20030324, end: 20030326
  2. TAGAMET [Concomitant]

REACTIONS (1)
  - BLOOD URINE [None]
